FAERS Safety Report 10527375 (Version 4)
Quarter: 2017Q3

REPORT INFORMATION
  Report Type: Spontaneous
  Country: JP (occurrence: JP)
  Receive Date: 20141020
  Receipt Date: 20170718
  Transmission Date: 20171127
  Serious: Yes (Death, Other)
  Sender: FDA-Public Use
  Company Number: JP-JNJFOC-20141009210

PATIENT
  Age: 77 Year
  Sex: Male
  Weight: 79.82 kg

DRUGS (4)
  1. XARELTO [Suspect]
     Active Substance: RIVAROXABAN
     Indication: ANTICOAGULANT THERAPY
     Route: 048
     Dates: start: 20140613
  2. PLAVIX [Interacting]
     Active Substance: CLOPIDOGREL BISULFATE
     Indication: CORONARY ARTERIAL STENT INSERTION
     Route: 048
     Dates: start: 20140613
  3. XARELTO [Suspect]
     Active Substance: RIVAROXABAN
     Indication: THROMBOSIS PROPHYLAXIS
     Route: 048
     Dates: start: 20140613
  4. BAYASPIRIN [Interacting]
     Active Substance: ASPIRIN
     Indication: CORONARY ARTERY STENOSIS
     Route: 048
     Dates: start: 20060718

REACTIONS (4)
  - Drug interaction [Unknown]
  - Haemothorax [Unknown]
  - Lung neoplasm malignant [Fatal]
  - Post procedural haemorrhage [Unknown]

NARRATIVE: CASE EVENT DATE: 20140719
